FAERS Safety Report 24626734 (Version 1)
Quarter: 2024Q4

REPORT INFORMATION
  Report Type: Spontaneous
  Country: US (occurrence: US)
  Receive Date: 20241115
  Receipt Date: 20241115
  Transmission Date: 20250115
  Serious: No
  Sender: NOVO NORDISK
  Company Number: US-NOVOPROD-1283700

PATIENT
  Sex: Female

DRUGS (1)
  1. NOVOLOG [Suspect]
     Active Substance: INSULIN ASPART
     Indication: Diabetes mellitus
     Dosage: SLIDING SCALE (AVERAGE 17 UNITS OF INSULIN PRIOR TO EACH MEAL)
     Route: 058
     Dates: start: 2014

REACTIONS (2)
  - Macular degeneration [Unknown]
  - Wrong technique in product usage process [Unknown]
